FAERS Safety Report 6337938-4 (Version None)
Quarter: 2009Q3

REPORT INFORMATION
  Report Type: 
  Country: None (occurrence: None)
  Receive Date: 20090902
  Receipt Date: 20090831
  Transmission Date: 20100115
  Serious: Yes (Disabling)
  Sender: FDA-Public Use
  Company Number: CA-WYE-G04046309

PATIENT
  Sex: Male
  Weight: 82.63 kg

DRUGS (10)
  1. PRISTIQ [Suspect]
     Indication: DEPRESSION
     Route: 048
     Dates: start: 20090422
  2. CRESTOR [Concomitant]
     Indication: HYPERCHOLESTEROLAEMIA
     Route: 048
  3. DIAMICRON [Concomitant]
     Indication: DIABETES MELLITUS
     Dosage: 30 MG EVERY
     Dates: start: 20071101
  4. XATRAL [Concomitant]
     Indication: PROSTATIC DISORDER
  5. PANTOPRAZOLE SODIUM [Concomitant]
     Indication: GASTROOESOPHAGEAL REFLUX DISEASE
     Route: 048
  6. FOLIC ACID [Concomitant]
     Route: 048
  7. MORPHINE [Concomitant]
     Indication: BACK PAIN
     Dosage: 45 MG QAM AND 30 MG QHS
  8. COSAMIN DS [Concomitant]
     Indication: ARTHRITIS
     Dosage: UNKNOWN
  9. METFORMIN HCL [Concomitant]
     Indication: DIABETES MELLITUS
     Route: 048
  10. ASPIRIN [Concomitant]
     Indication: ISCHAEMIA
     Route: 048
     Dates: start: 20060101

REACTIONS (2)
  - BLINDNESS [None]
  - RETINAL ARTERY OCCLUSION [None]
